FAERS Safety Report 23241723 (Version 1)
Quarter: 2023Q4

REPORT INFORMATION
  Report Type: Spontaneous
  Country: ES (occurrence: ES)
  Receive Date: 20231129
  Receipt Date: 20231129
  Transmission Date: 20240110
  Serious: Yes (Other)
  Sender: FDA-Public Use
  Company Number: ES-002147023-NVSC2023ES249584

PATIENT
  Age: 63 Year
  Sex: Female

DRUGS (4)
  1. RIBOCICLIB [Suspect]
     Active Substance: RIBOCICLIB
     Indication: Metastases to bone
     Dosage: 600 MG, QD
     Route: 065
  2. RIBOCICLIB [Suspect]
     Active Substance: RIBOCICLIB
     Indication: Breast cancer metastatic
  3. EXEMESTANE [Suspect]
     Active Substance: EXEMESTANE
     Indication: Metastases to bone
     Dosage: 25 MG, QD
     Route: 065
  4. EXEMESTANE [Suspect]
     Active Substance: EXEMESTANE
     Indication: Breast cancer metastatic

REACTIONS (1)
  - Subacute cutaneous lupus erythematosus [Recovered/Resolved]
